FAERS Safety Report 17613175 (Version 4)
Quarter: 2020Q2

REPORT INFORMATION
  Report Type: Spontaneous
  Country: CA (occurrence: CA)
  Receive Date: 20200402
  Receipt Date: 20200616
  Transmission Date: 20200713
  Serious: Yes (Other)
  Sender: FDA-Public Use
  Company Number: CA-CELLTRION INC.-2019CA023060

PATIENT

DRUGS (9)
  1. INFLECTRA [Suspect]
     Active Substance: INFLIXIMAB-DYYB
     Indication: RHEUMATOID ARTHRITIS
     Dosage: 200 MG, THEN EVERY 8 WEEKS
     Route: 042
  2. INFLECTRA [Suspect]
     Active Substance: INFLIXIMAB-DYYB
     Dosage: 200 MG, THEN EVERY 8 WEEKS
     Route: 042
     Dates: start: 20200117
  3. REMICADE [Concomitant]
     Active Substance: INFLIXIMAB
     Dosage: UNK (UNK STOP) - DISCONTINUED
     Route: 065
  4. CEFUROXIME. [Concomitant]
     Active Substance: CEFUROXIME
     Dosage: 500 MG, 2X/DAY
     Route: 048
     Dates: start: 20200320
  5. INFLECTRA [Suspect]
     Active Substance: INFLIXIMAB-DYYB
     Dosage: 200 MG, THEN EVERY 8 WEEKS
     Route: 042
     Dates: start: 20191121
  6. INFLECTRA [Suspect]
     Active Substance: INFLIXIMAB-DYYB
     Dosage: 200 MG, THEN EVERY 8 WEEKS
     Route: 042
     Dates: start: 20200609
  7. INFLECTRA [Suspect]
     Active Substance: INFLIXIMAB-DYYB
     Dosage: 200 MG, THEN EVERY 8 WEEKS
     Route: 042
     Dates: start: 20190730
  8. INFLECTRA [Suspect]
     Active Substance: INFLIXIMAB-DYYB
     Dosage: 200 MG, THEN EVERY 8 WEEKS
     Route: 042
     Dates: start: 20200418
  9. METHOTREXATE. [Concomitant]
     Active Substance: METHOTREXATE
     Dosage: 15 MG, WEEKLY
     Route: 048

REACTIONS (9)
  - Intentional product use issue [Unknown]
  - Dementia [Unknown]
  - Product use issue [Unknown]
  - Inappropriate schedule of product administration [Unknown]
  - Weight decreased [Unknown]
  - Off label use [Unknown]
  - Blood pressure fluctuation [Unknown]
  - Urinary tract infection [Unknown]
  - Blood pressure increased [Unknown]

NARRATIVE: CASE EVENT DATE: 20190730
